FAERS Safety Report 5715895-9 (Version None)
Quarter: 2008Q2

REPORT INFORMATION
  Report Type: 
  Country: None (occurrence: None)
  Receive Date: 20080424
  Receipt Date: 20080418
  Transmission Date: 20081010
  Serious: Yes (Death, Life-Threatening, Hospitalization)
  Sender: FDA-Public Use
  Company Number: KR-BAYER-200711411GDS

PATIENT
  Age: 61 Year
  Sex: Male
  Weight: 57 kg

DRUGS (17)
  1. SORAFENIB [Suspect]
     Indication: NON-SMALL CELL LUNG CANCER
     Dosage: TOTAL DAILY DOSE: 800 MG
     Route: 048
     Dates: start: 20070126, end: 20070206
  2. CARBOPLATIN [Suspect]
     Indication: NON-SMALL CELL LUNG CANCER
  3. PACLITAXEL [Suspect]
     Indication: NON-SMALL CELL LUNG CANCER
  4. OXYCODONE HCL [Concomitant]
     Indication: DRUG USE FOR UNKNOWN INDICATION
     Route: 048
     Dates: start: 20070125
  5. METOCLOPRAMIDE [Concomitant]
     Indication: DRUG USE FOR UNKNOWN INDICATION
     Route: 048
     Dates: start: 20070125
  6. FAMOTIDINE [Concomitant]
     Indication: DRUG USE FOR UNKNOWN INDICATION
     Route: 048
     Dates: start: 20070125
  7. OXOLAMINE [Concomitant]
     Indication: COUGH
     Route: 048
     Dates: start: 20070130
  8. OXOLAMINE [Concomitant]
     Route: 048
     Dates: start: 20070206, end: 20070220
  9. CODEINE SUL TAB [Concomitant]
     Indication: COUGH
     Route: 048
     Dates: start: 20070130
  10. CODEINE SUL TAB [Concomitant]
     Route: 048
     Dates: start: 20070213, end: 20070220
  11. AMBROXOL [Concomitant]
     Indication: DRUG USE FOR UNKNOWN INDICATION
     Route: 048
     Dates: start: 20070130
  12. MEGESTROL ACETATE [Concomitant]
     Indication: DRUG USE FOR UNKNOWN INDICATION
     Route: 048
     Dates: start: 20070130
  13. EBASTINE [Concomitant]
     Indication: DRUG USE FOR UNKNOWN INDICATION
     Route: 048
     Dates: start: 20070130
  14. DEXTROMETHORPHAN HYDROBROMIDE [Concomitant]
     Indication: DRUG USE FOR UNKNOWN INDICATION
     Route: 048
     Dates: start: 20070130
  15. METFORM [Concomitant]
     Indication: DIABETES MELLITUS
     Route: 048
     Dates: start: 20040101
  16. METFORM [Concomitant]
     Route: 048
     Dates: start: 20070213, end: 20070220
  17. FUROSEMIDE [Concomitant]
     Indication: PULMONARY OEDEMA
     Route: 048
     Dates: start: 20070213, end: 20070220

REACTIONS (7)
  - ASTHENIA [None]
  - DYSPNOEA [None]
  - HYPOXIA [None]
  - LOCALISED INFECTION [None]
  - NON-SMALL CELL LUNG CANCER [None]
  - OEDEMA PERIPHERAL [None]
  - RASH [None]
